FAERS Safety Report 10830386 (Version 2)
Quarter: 2015Q1

REPORT INFORMATION
  Report Type: Spontaneous
  Country: US (occurrence: US)
  Receive Date: 20150219
  Receipt Date: 20150318
  Transmission Date: 20150721
  Serious: No
  Sender: FDA-Public Use
  Company Number: US-PFIZER INC-2014357473

PATIENT
  Age: 74 Year
  Sex: Female

DRUGS (1)
  1. AROMASIN [Suspect]
     Active Substance: EXEMESTANE
     Indication: INVASIVE LOBULAR BREAST CARCINOMA
     Dosage: 25 MG, DAILY

REACTIONS (1)
  - Malaise [Unknown]
